FAERS Safety Report 5881194-8 (Version None)
Quarter: 2008Q3

REPORT INFORMATION
  Report Type: 
  Country: None (occurrence: None)
  Receive Date: 20080912
  Receipt Date: 20080620
  Transmission Date: 20090109
  Serious: No
  Sender: FDA-Public Use
  Company Number: US-ABBOTT-08P-163-0459144-00

PATIENT
  Sex: Male
  Weight: 72.64 kg

DRUGS (4)
  1. HUMIRA [Suspect]
     Indication: CROHN'S DISEASE
     Dosage: 2 INJECTIONS OF 40 MG EACH
     Route: 058
     Dates: start: 20080323, end: 20080323
  2. HUMIRA [Suspect]
     Route: 058
  3. MESALAMINE [Concomitant]
     Indication: INFLAMMATION
     Route: 048
     Dates: start: 20070801
  4. CALCIUM [Concomitant]
     Indication: VITAMIN SUPPLEMENTATION
     Route: 048
     Dates: start: 20071101

REACTIONS (1)
  - DRUG INEFFECTIVE [None]
